FAERS Safety Report 6484793-8 (Version None)
Quarter: 2009Q4

REPORT INFORMATION
  Report Type: 
  Country: None (occurrence: None)
  Receive Date: 20091209
  Receipt Date: 20090310
  Transmission Date: 20100525
  Serious: No
  Sender: FDA-Public Use
  Company Number: A0761911A

PATIENT
  Age: 52 Year
  Sex: Female

DRUGS (2)
  1. AVANDAMET [Suspect]
     Dosage: 1TAB TWICE PER DAY
     Route: 048
  2. LORTAB [Concomitant]

REACTIONS (4)
  - ABNORMAL FAECES [None]
  - BLOOD GLUCOSE INCREASED [None]
  - CONSTIPATION [None]
  - PRODUCT QUALITY ISSUE [None]
